FAERS Safety Report 7150152-8 (Version None)
Quarter: 2010Q4

REPORT INFORMATION
  Report Type: 
  Country: None (occurrence: None)
  Receive Date: 20101124
  Receipt Date: 20101117
  Transmission Date: 20110411
  Serious: Yes (Other)
  Sender: FDA-Public Use
  Company Number: 2010SP055265

PATIENT
  Age: 65 Year
  Sex: Female

DRUGS (7)
  1. ASMANEX TWISTHALER [Suspect]
     Indication: ASTHMA
     Dosage: 220 MCG;BID;INH
     Route: 055
     Dates: start: 20101005, end: 20101010
  2. FLONASE [Concomitant]
  3. PATANASE [Concomitant]
  4. ALBUTEROL [Concomitant]
  5. MAXZIDE [Concomitant]
  6. PRILOSEC [Concomitant]
  7. XANAX [Concomitant]

REACTIONS (1)
  - ANXIETY [None]
